FAERS Safety Report 7302968-2 (Version None)
Quarter: 2011Q1

REPORT INFORMATION
  Report Type: 
  Country: None (occurrence: None)
  Receive Date: 20110220
  Receipt Date: 20110214
  Transmission Date: 20110831
  Serious: Yes (Life-Threatening, Hospitalization, Other)
  Sender: FDA-Public Use
  Company Number: FR-AMGEN-FRASP2011008454

PATIENT
  Age: 47 Year
  Sex: Male
  Weight: 74 kg

DRUGS (4)
  1. CORTICOSTEROIDS [Concomitant]
  2. GRANOCYTE 34 [Suspect]
     Indication: NEUTROPENIA
     Dosage: UNK
     Dates: start: 20101212, end: 20101212
  3. NEULASTA [Suspect]
     Indication: NEUTROPENIA
     Dosage: UNK
     Route: 058
     Dates: start: 20100310
  4. VIDAZA [Suspect]
     Indication: MYELODYSPLASTIC SYNDROME
     Dosage: UNK
     Route: 058
     Dates: start: 20091005

REACTIONS (3)
  - FEBRILE NEUTROPENIA [None]
  - PYODERMA GANGRENOSUM [None]
  - BONE MARROW FAILURE [None]
